FAERS Safety Report 9961673 (Version 2)
Quarter: 2014Q1

REPORT INFORMATION
  Report Type: Report from Study
  Country: US (occurrence: US)
  Receive Date: 20140305
  Receipt Date: 20140305
  Transmission Date: 20141002
  Serious: No
  Sender: FDA-Public Use
  Company Number: US-ABBVIE-13P-163-1110947-00

PATIENT
  Age: 64 Year
  Sex: Male

DRUGS (12)
  1. HUMIRA [Suspect]
     Indication: CROHN^S DISEASE
     Dosage: INITIAL DOSE
     Route: 058
     Dates: start: 20130612, end: 20130612
  2. HUMIRA [Suspect]
     Route: 058
  3. OMEPRAZOLE [Concomitant]
     Indication: GASTROOESOPHAGEAL REFLUX DISEASE
  4. ACYCLOVIR [Concomitant]
     Indication: HERPES VIRUS INFECTION
  5. ENALAPRIL [Concomitant]
     Indication: HYPERTENSION
  6. GLIPIZIDE [Concomitant]
     Indication: DIABETES MELLITUS
     Dosage: 5 - 10 MG (BASED ON HIS BLOOD SUGAR)
  7. PREDNISONE [Concomitant]
     Indication: PRODUCT USED FOR UNKNOWN INDICATION
     Dosage: TO START TAPER SOON
  8. SIMVASTATIN [Concomitant]
     Indication: BLOOD CHOLESTEROL INCREASED
  9. LOPERAMIDE [Concomitant]
     Indication: DIARRHOEA
     Dosage: 4 MG AM THEN UP TO 8 MG MORE
  10. HYDROCODONE [Concomitant]
     Indication: PAIN
  11. MICONAZOLE [Concomitant]
     Indication: RASH
  12. ZYRTEC [Concomitant]
     Indication: SEASONAL ALLERGY

REACTIONS (5)
  - Asthenia [Recovered/Resolved]
  - Influenza [Recovered/Resolved]
  - Fall [Recovered/Resolved]
  - Muscular weakness [Recovered/Resolved]
  - Contusion [Recovered/Resolved]
